FAERS Safety Report 8444252 (Version 3)
Quarter: 2013Q2

REPORT INFORMATION
  Report Type: Spontaneous
  Country: TR (occurrence: TR)
  Receive Date: 20120307
  Receipt Date: 20130530
  Transmission Date: 20140414
  Serious: Yes (Other)
  Sender: FDA-Public Use
  Company Number: TR-AMGEN-TURSP2012012818

PATIENT
  Age: 41 Year
  Sex: Male

DRUGS (4)
  1. ENBREL [Suspect]
     Indication: FAMILIAL MEDITERRANEAN FEVER
     Dosage: 25 MG, 2X/WEEK
     Route: 058
     Dates: start: 20091005, end: 20120214
  2. ENBREL [Suspect]
     Indication: AMYLOIDOSIS
     Dosage: 50 MG, QWK
     Route: 058
     Dates: start: 2012
  3. ANTIHYPERTENSIVES [Concomitant]
     Dosage: UNK
  4. VITAMINS /90003601/ [Concomitant]
     Dosage: UNK

REACTIONS (5)
  - Cough [Not Recovered/Not Resolved]
  - Pyrexia [Not Recovered/Not Resolved]
  - Off label use [Not Recovered/Not Resolved]
  - Influenza [Not Recovered/Not Resolved]
  - Injection site pain [Not Recovered/Not Resolved]
